FAERS Safety Report 15523253 (Version 2)
Quarter: 2018Q4

REPORT INFORMATION
  Report Type: Spontaneous
  Country: US (occurrence: US)
  Receive Date: 20181018
  Receipt Date: 20181113
  Transmission Date: 20190205
  Serious: Yes (Other)
  Sender: FDA-Public Use
  Company Number: US-BIOGEN-2018BI00645125

PATIENT
  Age: 52 Year
  Sex: Female

DRUGS (2)
  1. AVONEX [Suspect]
     Active Substance: INTERFERON BETA-1A
     Indication: PRODUCT USED FOR UNKNOWN INDICATION
     Route: 065
     Dates: start: 1998
  2. AVONEX [Suspect]
     Active Substance: INTERFERON BETA-1A
     Route: 065
     Dates: start: 201801

REACTIONS (1)
  - Injection site necrosis [Unknown]

NARRATIVE: CASE EVENT DATE: 20181010
